FAERS Safety Report 9221120 (Version 4)
Quarter: 2013Q2

REPORT INFORMATION
  Report Type: Report from Study
  Country: RU (occurrence: RU)
  Receive Date: 20130409
  Receipt Date: 20130517
  Transmission Date: 20140414
  Serious: Yes (Hospitalization)
  Sender: FDA-Public Use
  Company Number: RU-009507513-2012SP007395

PATIENT
  Age: 13 Year
  Sex: Female
  Weight: 89.5 kg

DRUGS (4)
  1. ASENAPINE MALEATE-SCHIZOPHRENIA [Suspect]
     Indication: SCHIZOPHRENIA
     Dosage: 2.5 MG, BID
     Route: 048
     Dates: start: 20120203, end: 20120204
  2. ASENAPINE MALEATE-SCHIZOPHRENIA [Suspect]
     Dosage: UNK
     Route: 048
     Dates: start: 20120126, end: 20120203
  3. ACETAMINOPHEN [Concomitant]
     Indication: NASOPHARYNGITIS
     Dosage: 500 MG, BID
     Route: 048
     Dates: start: 20120129, end: 20120201
  4. FLEMOXIN [Concomitant]
     Indication: NASOPHARYNGITIS
     Dosage: 500 MG, BID
     Route: 048
     Dates: start: 20120130, end: 20120204

REACTIONS (3)
  - Schizophrenia [Recovered/Resolved]
  - Dystonia [Recovered/Resolved]
  - Hypersensitivity [Recovered/Resolved]
